FAERS Safety Report 15239193 (Version 2)
Quarter: 2018Q3

REPORT INFORMATION
  Report Type: Spontaneous
  Country: US (occurrence: US)
  Receive Date: 20180803
  Receipt Date: 20180806
  Transmission Date: 20181010
  Serious: Yes (Hospitalization, Other)
  Sender: FDA-Public Use
  Company Number: US-PFIZER INC-2018309490

PATIENT
  Age: 58 Year
  Sex: Female

DRUGS (1)
  1. METHOTREXATE SODIUM. [Suspect]
     Active Substance: METHOTREXATE SODIUM
     Indication: RHEUMATOID ARTHRITIS
     Dosage: 15 MG, WEEKLY (STARTED ORAL MTX 15 MG WEEKLY 3 MONTHS PRIOR TO ADMISSION)
     Route: 048

REACTIONS (4)
  - Pneumonitis [Recovering/Resolving]
  - Hypercalcaemia [Recovered/Resolved]
  - Pulmonary toxicity [Recovering/Resolving]
  - Respiratory failure [Recovering/Resolving]
